FAERS Safety Report 7096153-X (Version None)
Quarter: 2010Q4

REPORT INFORMATION
  Report Type: 
  Country: None (occurrence: None)
  Receive Date: 20101111
  Receipt Date: 20101104
  Transmission Date: 20110411
  Serious: Yes (Hospitalization)
  Sender: FDA-Public Use
  Company Number: JP-ROCHE-737872

PATIENT
  Age: 13 Year
  Sex: Male
  Weight: 30.2 kg

DRUGS (1)
  1. TAMIFLU [Suspect]
     Indication: INFLUENZA
     Dosage: DOSAGE IS UNKNOWN
     Route: 048
     Dates: start: 20101008, end: 20101012

REACTIONS (1)
  - PANCREATITIS ACUTE [None]
